FAERS Safety Report 5071542-3 (Version None)
Quarter: 2006Q3

REPORT INFORMATION
  Report Type: 
  Country: None (occurrence: None)
  Receive Date: 20060803
  Receipt Date: 20060803
  Transmission Date: 20061208
  Serious: Yes (Hospitalization)
  Sender: FDA-Public Use
  Company Number: None

PATIENT
  Age: 62 Year
  Sex: Male
  Weight: 65.5 kg

DRUGS (3)
  1. FLUDARABINE 50 MG [Suspect]
     Indication: NON-HODGKIN'S LYMPHOMA
     Dosage: 50 MG IV DAILY X3 DAYS
     Route: 042
     Dates: start: 20060206, end: 20060208
  2. FLUDARABINE 50 MG [Suspect]
     Indication: NON-HODGKIN'S LYMPHOMA
     Dosage: 50 MG IV DAILY X3 DAYS
     Route: 042
     Dates: start: 20060306, end: 20060308
  3. FLUDARABINE 50 MG [Suspect]
     Indication: NON-HODGKIN'S LYMPHOMA
     Dosage: 50 MG IV DAILY X3 DAYS
     Route: 042
     Dates: start: 20060403

REACTIONS (3)
  - ASTHENIA [None]
  - BLOOD TEST ABNORMAL [None]
  - PNEUMONITIS [None]
